FAERS Safety Report 24305168 (Version 1)
Quarter: 2024Q3

REPORT INFORMATION
  Report Type: Spontaneous
  Country: US (occurrence: US)
  Receive Date: 20240911
  Receipt Date: 20240911
  Transmission Date: 20241017
  Serious: Yes (Death, Other)
  Sender: STRIDES
  Company Number: US-STRIDES ARCOLAB LIMITED-2024SP011460

PATIENT

DRUGS (6)
  1. MORPHINE SULFATE [Suspect]
     Active Substance: MORPHINE SULFATE
     Indication: Parkinson^s disease
     Dosage: 7.5 MILLIGRAM, EVERY 6 HRS
     Route: 065
  2. LEVETIRACETAM [Suspect]
     Active Substance: LEVETIRACETAM
     Indication: Drug therapy
     Dosage: 250 MILLIGRAM, BID
     Route: 065
  3. PRAMIPEXOLE DIHYDROCHLORIDE [Suspect]
     Active Substance: PRAMIPEXOLE DIHYDROCHLORIDE
     Indication: Parkinson^s disease
     Dosage: 0.75 MILLIGRAM, TID
     Route: 065
  4. PRAMIPEXOLE DIHYDROCHLORIDE [Suspect]
     Active Substance: PRAMIPEXOLE DIHYDROCHLORIDE
     Dosage: 0.25 MILLIGRAM, TID
     Route: 065
  5. CARBIDOPA\LEVODOPA [Suspect]
     Active Substance: CARBIDOPA\LEVODOPA
     Indication: Parkinson^s disease
     Dosage: 2 DOSAGE FORM, QID
     Route: 065
  6. LORAZEPAM [Suspect]
     Active Substance: LORAZEPAM
     Indication: Parkinson^s disease
     Dosage: 0.5 MILLIGRAM, EVERY 6 HRS
     Route: 065

REACTIONS (4)
  - Death [Fatal]
  - Parkinson^s disease [Unknown]
  - Therapy non-responder [Unknown]
  - Off label use [Unknown]
